FAERS Safety Report 25888167 (Version 1)
Quarter: 2025Q4

REPORT INFORMATION
  Report Type: Spontaneous
  Country: GB (occurrence: GB)
  Receive Date: 20251007
  Receipt Date: 20251007
  Transmission Date: 20260117
  Serious: Yes (Other)
  Sender: CHEPLAPHARM
  Company Number: GB-CHEPLA-2025011464

PATIENT
  Age: 4 Decade
  Sex: Female

DRUGS (4)
  1. OLANZAPINE [Suspect]
     Active Substance: OLANZAPINE
     Indication: Schizophrenia
     Dosage: 5 MG TWICE DAILY?DAILY DOSE: 10 MILLIGRAM
     Route: 048
     Dates: start: 2018
  2. OLANZAPINE [Suspect]
     Active Substance: OLANZAPINE
     Indication: Schizophrenia
     Dosage: DOSE INCREASED NEARLY 2 MONTHS PRIOR?DAILY DOSE: 15 MILLIGRAM
     Route: 048
  3. OLANZAPINE [Suspect]
     Active Substance: OLANZAPINE
     Indication: Schizophrenia
     Dosage: 10 MG TWICE DAILY??DAILY DOSE: 20 MILLIGRAM
     Route: 048
  4. LURASIDONE [Suspect]
     Active Substance: LURASIDONE
     Indication: Schizophrenia
     Dosage: NIGHTLY?DAILY DOSE: 74 MILLIGRAM
     Route: 048

REACTIONS (8)
  - Rhabdomyolysis [Recovering/Resolving]
  - Inappropriate antidiuretic hormone secretion [Recovering/Resolving]
  - Peripheral nerve injury [Recovering/Resolving]
  - Generalised tonic-clonic seizure [Recovering/Resolving]
  - Eosinophilia [Recovering/Resolving]
  - Hypertransaminasaemia [Recovering/Resolving]
  - Blood calcium decreased [Recovering/Resolving]
  - Blood magnesium decreased [Recovering/Resolving]
